FAERS Safety Report 8333497-5 (Version None)
Quarter: 2012Q2

REPORT INFORMATION
  Report Type: 
  Country: None (occurrence: None)
  Receive Date: 20120503
  Receipt Date: 20120423
  Transmission Date: 20120825
  Serious: Yes (Hospitalization, Other)
  Sender: FDA-Public Use
  Company Number: US-SANOFI-AVENTIS-2012SA019202

PATIENT
  Age: 67 Year
  Sex: Female
  Weight: 65.13 kg

DRUGS (34)
  1. DOCETAXEL [Suspect]
     Route: 041
  2. BLINDED THERAPY [Suspect]
     Dates: start: 20111005, end: 20111028
  3. BUDESONIDE [Concomitant]
  4. PEPCID [Concomitant]
  5. MULTI-VITAMINS [Concomitant]
  6. ZOFRAN [Concomitant]
  7. DOCETAXEL [Suspect]
     Route: 041
  8. DOCETAXEL [Suspect]
     Route: 041
     Dates: start: 20111028, end: 20111028
  9. BLINDED THERAPY [Suspect]
     Dates: start: 20110617, end: 20111005
  10. ZOMETA [Concomitant]
  11. SINGULAIR [Concomitant]
  12. ALBUTEROL [Concomitant]
  13. ALBUTEROL SULFATE AND IPRATROPIUM BROMIDE [Concomitant]
  14. ZOLOFT [Concomitant]
  15. DOCETAXEL [Suspect]
     Route: 041
     Dates: start: 20110617, end: 20110617
  16. DOCETAXEL [Suspect]
     Route: 041
  17. MORPHINE [Concomitant]
  18. VITAMIN C [Concomitant]
  19. CALCIUM CARBONATE [Concomitant]
  20. ASPIRIN [Concomitant]
  21. AZITHROMYCIN [Concomitant]
     Dates: start: 20110823, end: 20110830
  22. COMPAZINE [Concomitant]
  23. DIPHENHYDRAMINE HCL [Concomitant]
  24. VITAMIN D [Concomitant]
  25. ALLEGRA [Concomitant]
  26. AMBIEN [Concomitant]
  27. SYNTHROID [Concomitant]
  28. DOCETAXEL [Suspect]
     Route: 041
     Dates: start: 20111007, end: 20111007
  29. MIRALAX [Concomitant]
  30. ALOXI [Concomitant]
  31. FLONASE [Concomitant]
  32. DOCETAXEL [Suspect]
     Route: 041
     Dates: start: 20110908, end: 20110908
  33. XANAX [Concomitant]
  34. ATIVAN [Concomitant]

REACTIONS (3)
  - UNDERDOSE [None]
  - FEBRILE NEUTROPENIA [None]
  - FATIGUE [None]
